FAERS Safety Report 5070228-9 (Version None)
Quarter: 2006Q3

REPORT INFORMATION
  Report Type: 
  Country: None (occurrence: None)
  Receive Date: 20060731
  Receipt Date: 20060713
  Transmission Date: 20061208
  Serious: Yes (Hospitalization, Congenital Anomaly)
  Sender: FDA-Public Use
  Company Number: DSA_28488_2006

PATIENT
  Age: 8 Month
  Sex: Female

DRUGS (2)
  1. ORFIDAL [Suspect]
     Dosage: DF Q DAY TRAN-P
     Route: 064
     Dates: start: 20030201, end: 20030301
  2. SEROPRAM [Suspect]
     Dosage: 5 MG Q DAY TRAN-P
     Route: 064
     Dates: start: 20030201, end: 20030401

REACTIONS (3)
  - ATRIAL SEPTAL DEFECT [None]
  - DRUG EXPOSURE DURING PREGNANCY [None]
  - HEART DISEASE CONGENITAL [None]
